FAERS Safety Report 14664475 (Version 5)
Quarter: 2018Q2

REPORT INFORMATION
  Report Type: Report from Study
  Country: US (occurrence: US)
  Receive Date: 20180321
  Receipt Date: 20180629
  Transmission Date: 20180711
  Serious: Yes (Death, Hospitalization, Other)
  Sender: FDA-Public Use
  Company Number: US-TAKEDA-2018MPI002760

PATIENT
  Age: 61 Year
  Sex: Male
  Weight: 71.2 kg

DRUGS (24)
  1. CYTOXAN [Concomitant]
     Active Substance: CYCLOPHOSPHAMIDE
     Dosage: 50 MG, UNK
     Route: 048
     Dates: end: 20180327
  2. FISH OIL [Concomitant]
     Active Substance: FISH OIL
     Dosage: 1000 MG, QD
     Route: 048
     Dates: end: 20180328
  3. LASIX [Concomitant]
     Active Substance: FUROSEMIDE
     Dosage: 20 MG, UNK
     Route: 048
  4. DEXAMETHASONE. [Suspect]
     Active Substance: DEXAMETHASONE
     Indication: AMYLOIDOSIS
     Dosage: 20 MG, UNK
     Route: 048
     Dates: start: 20180227
  5. BACTRIM [Concomitant]
     Active Substance: SULFAMETHOXAZOLE\TRIMETHOPRIM
     Dosage: UNK
     Route: 048
  6. DECADRON [Concomitant]
     Active Substance: DEXAMETHASONE
     Dosage: 20 MG, UNK
     Route: 048
     Dates: end: 20180327
  7. METOLAZONE. [Concomitant]
     Active Substance: METOLAZONE
     Dosage: 2.5 MG, UNK
     Route: 048
     Dates: end: 20180413
  8. CORDARONE [Concomitant]
     Active Substance: AMIODARONE HYDROCHLORIDE
     Dosage: UNK
     Route: 048
  9. K-DUR [Concomitant]
     Active Substance: POTASSIUM CHLORIDE
     Dosage: 10 MEQ, BID
     Route: 048
  10. COUMADIN [Concomitant]
     Active Substance: WARFARIN SODIUM
     Dosage: 5 MG, QD
     Route: 048
  11. IXAZOMIB [Suspect]
     Active Substance: IXAZOMIB
     Indication: AMYLOIDOSIS
     Dosage: 4 MG, UNK
     Route: 048
     Dates: start: 20180129
  12. TYLENOL [Concomitant]
     Active Substance: ACETAMINOPHEN
     Dosage: 1000 MG, QD
     Route: 048
     Dates: end: 20180328
  13. ALBUTEROL HFA [Concomitant]
     Active Substance: ALBUTEROL SULFATE
     Dosage: UNK
     Route: 055
     Dates: end: 20180413
  14. DEMADEX [Concomitant]
     Active Substance: TORSEMIDE
     Dosage: 20 MG, UNK
     Route: 048
     Dates: end: 20180413
  15. NITROSTAT [Concomitant]
     Active Substance: NITROGLYCERIN
     Indication: CHEST PAIN
     Dosage: 0.4 MG, UNK
     Route: 060
  16. IXAZOMIB CITRATE [Concomitant]
     Active Substance: IXAZOMIB CITRATE
     Dosage: UNK
     Route: 048
     Dates: end: 20180327
  17. CYCLOPHOSPHAMIDE. [Suspect]
     Active Substance: CYCLOPHOSPHAMIDE
     Indication: AMYLOIDOSIS
     Dosage: 500 MG, UNK
     Route: 065
     Dates: start: 20180227
  18. ASPIRINE [Concomitant]
     Active Substance: ASPIRIN
     Dosage: 81 MG, QD
     Route: 048
     Dates: end: 20180328
  19. PROTONIX                           /00661201/ [Concomitant]
     Active Substance: OMEPRAZOLE
     Indication: GASTROINTESTINAL HAEMORRHAGE
     Dosage: 40 MG, QD
     Route: 048
     Dates: end: 20180413
  20. POTASSIUM CHLORIDE. [Concomitant]
     Active Substance: POTASSIUM CHLORIDE
     Dosage: 10 MEQ, BID
  21. FERATAB [Concomitant]
     Dosage: 325 MG, UNK
     Route: 048
  22. COMPAZINE                          /00013302/ [Concomitant]
     Active Substance: PROCHLORPERAZINE EDISYLATE
     Dosage: 5 MG, UNK
     Route: 048
  23. NORCO [Concomitant]
     Active Substance: ACETAMINOPHEN\HYDROCODONE BITARTRATE
     Indication: PAIN
     Dosage: UNK
     Route: 048
     Dates: end: 20180413
  24. ZOVIRAX [Concomitant]
     Active Substance: ACYCLOVIR
     Dosage: 400 MG, BID
     Route: 048
     Dates: end: 20180328

REACTIONS (9)
  - Cardiac failure [Fatal]
  - Platelet count decreased [Recovered/Resolved]
  - Hypocalcaemia [Recovered/Resolved]
  - White blood cell count decreased [Recovered/Resolved]
  - Dyspnoea [Recovered/Resolved]
  - Anaemia [Recovered/Resolved]
  - Asthenia [Unknown]
  - Oedema peripheral [Recovered/Resolved]
  - Blood creatinine increased [Recovered/Resolved]

NARRATIVE: CASE EVENT DATE: 20180303
